FAERS Safety Report 18344417 (Version 8)
Quarter: 2020Q4

REPORT INFORMATION
  Report Type: Spontaneous
  Country: JP (occurrence: JP)
  Receive Date: 20201005
  Receipt Date: 20201126
  Transmission Date: 20210114
  Serious: Yes (Death)
  Sender: FDA-Public Use
  Company Number: JP-PFIZER INC-2020379596

PATIENT
  Age: 46 Year
  Sex: Female

DRUGS (3)
  1. TEGAFUR [Concomitant]
     Active Substance: TEGAFUR
     Dosage: UNK
  2. KRESTIN [Concomitant]
     Active Substance: POLYSACCHARIDE-K
     Dosage: UNK
  3. MEDROXYPROGESTERONE ACETATE. [Suspect]
     Active Substance: MEDROXYPROGESTERONE ACETATE
     Indication: BREAST CANCER
     Dosage: 600 MG, DAILY
     Route: 048

REACTIONS (1)
  - Cerebral venous sinus thrombosis [Fatal]
